FAERS Safety Report 9346267 (Version 1)
Quarter: 2013Q2

REPORT INFORMATION
  Report Type: Spontaneous
  Country: FR (occurrence: FR)
  Receive Date: 20130613
  Receipt Date: 20130613
  Transmission Date: 20140414
  Serious: Yes (Hospitalization)
  Sender: FDA-Public Use
  Company Number: FR-GE HEALTHCARE MEDICAL DIAGNOSTICS-VISP-NO-1306S-0677

PATIENT
  Age: 29 Year
  Sex: Female

DRUGS (10)
  1. VISIPAQUE [Suspect]
     Indication: PRODUCT USED FOR UNKNOWN INDICATION
     Dosage: DOSE NOT REPORTED
     Route: 042
     Dates: start: 20130521, end: 20130521
  2. VISIPAQUE [Suspect]
     Indication: DIAGNOSTIC PROCEDURE
  3. TIENAM [Concomitant]
     Dates: start: 20130430
  4. TRIFLUCAN [Concomitant]
     Dates: start: 20130430
  5. ACUPAN [Concomitant]
     Dates: start: 20130430
  6. CONTRAMAL [Concomitant]
     Dates: start: 20130430
  7. MORPHINE [Concomitant]
     Dates: start: 20130430
  8. EUPANTOL [Concomitant]
     Dates: start: 20130430
  9. LOVENOX [Concomitant]
     Dates: start: 20130430
  10. PARENTERAL NUTRITION [Concomitant]
     Dates: start: 20130430

REACTIONS (2)
  - Rash maculo-papular [Recovering/Resolving]
  - Pruritus [Recovering/Resolving]
